FAERS Safety Report 7700917-6 (Version None)
Quarter: 2011Q3

REPORT INFORMATION
  Report Type: 
  Country: None (occurrence: None)
  Receive Date: 20110822
  Receipt Date: 20110816
  Transmission Date: 20111222
  Serious: Yes (Other)
  Sender: FDA-Public Use
  Company Number: PHHY2011BE73389

PATIENT
  Age: 2 Day

DRUGS (1)
  1. METHERGINE [Suspect]
     Dosage: 15 DRP, 14 TIMES

REACTIONS (4)
  - TACHYCARDIA [None]
  - WRONG DRUG ADMINISTERED [None]
  - VOMITING [None]
  - AGITATION [None]
